FAERS Safety Report 16354279 (Version 1)
Quarter: 2019Q2

REPORT INFORMATION
  Report Type: Spontaneous
  Country: PT (occurrence: PT)
  Receive Date: 20190524
  Receipt Date: 20190524
  Transmission Date: 20190711
  Serious: Yes (Hospitalization, Other)
  Sender: FDA-Public Use
  Company Number: PT-JNJFOC-20190519073

PATIENT
  Age: 20 Year
  Sex: Male

DRUGS (3)
  1. DOXORUBICIN [Suspect]
     Active Substance: DOXORUBICIN
     Indication: EWING^S SARCOMA
     Route: 065
  2. CYCLOPHOSPHAMIDE. [Suspect]
     Active Substance: CYCLOPHOSPHAMIDE
     Indication: EWING^S SARCOMA
     Route: 065
  3. VINCRISTINE [Suspect]
     Active Substance: VINCRISTINE
     Indication: EWING^S SARCOMA
     Route: 065

REACTIONS (16)
  - Anal abscess [Unknown]
  - Herpes zoster [Unknown]
  - Spinal pain [Unknown]
  - Product use in unapproved indication [Unknown]
  - Stomatitis [Unknown]
  - Septic embolus [Unknown]
  - Staphylococcal bacteraemia [Unknown]
  - Haemorrhoids thrombosed [Unknown]
  - Pancytopenia [Unknown]
  - Mouth haemorrhage [Unknown]
  - Septic shock [Unknown]
  - Thrombocytopenia [Unknown]
  - Febrile neutropenia [Unknown]
  - Off label use [Unknown]
  - Oropharyngeal candidiasis [Unknown]
  - Arthritis [Unknown]
